FAERS Safety Report 14335153 (Version 10)
Quarter: 2018Q3

REPORT INFORMATION
  Report Type: Report from Study
  Country: DE (occurrence: DE)
  Receive Date: 20171229
  Receipt Date: 20180805
  Transmission Date: 20181010
  Serious: Yes (Life-Threatening, Hospitalization, Other)
  Sender: FDA-Public Use
  Company Number: DE-BRISTOL-MYERS SQUIBB COMPANY-BMS-2017-115165

PATIENT
  Age: 53 Year
  Sex: Male
  Weight: 87 kg

DRUGS (14)
  1. DECADRON [Suspect]
     Active Substance: DEXAMETHASONE
     Indication: PRODUCT USED FOR UNKNOWN INDICATION
     Dosage: 40 MG, UNK ON DAY 14
     Route: 048
     Dates: start: 20170627, end: 20170630
  2. DECADRON [Suspect]
     Active Substance: DEXAMETHASONE
     Indication: PRODUCT USED FOR UNKNOWN INDICATION
     Dosage: 12 MG, ON DAY 1 AND DAY 15
     Route: 048
  3. ADRIAMYCIN [Suspect]
     Active Substance: DOXORUBICIN HYDROCHLORIDE
     Indication: PLASMA CELL MYELOMA
     Dosage: 15.00 MG/M2, UNK
     Route: 042
     Dates: start: 20170627, end: 20170630
  4. REVLIMID [Suspect]
     Active Substance: LENALIDOMIDE
     Indication: PRODUCT USED FOR UNKNOWN INDICATION
     Dosage: 10 MG, QD
     Route: 048
     Dates: start: 20180206, end: 2018
  5. VELCADE [Suspect]
     Active Substance: BORTEZOMIB
     Indication: PLASMA CELL MYELOMA
     Dosage: 2.6 MG/M2, QWK
     Route: 042
     Dates: start: 20170307, end: 20170405
  6. VELCADE [Suspect]
     Active Substance: BORTEZOMIB
     Indication: PRODUCT USED FOR UNKNOWN INDICATION
     Dosage: 1.3 MG/M2, UNK
     Route: 058
  7. DECADRON [Suspect]
     Active Substance: DEXAMETHASONE
     Indication: PLASMA CELL MYELOMA
     Dosage: 12 MG, UNK
     Route: 042
     Dates: start: 20170307, end: 20170619
  8. DECADRON [Suspect]
     Active Substance: DEXAMETHASONE
     Indication: PRODUCT USED FOR UNKNOWN INDICATION
     Dosage: 20 MG, ON DAYS 2, 4?5, 9, 11?12
     Route: 048
     Dates: start: 20170307, end: 20170619
  9. CYTOXAN [Suspect]
     Active Substance: CYCLOPHOSPHAMIDE
     Indication: PLASMA CELL MYELOMA
     Dosage: 1000 MG/M2, UNK
     Route: 042
     Dates: start: 20170627, end: 20170630
  10. REVLIMID [Suspect]
     Active Substance: LENALIDOMIDE
     Indication: PLASMA CELL MYELOMA
     Dosage: 25 MG, FOR 2 WEEKS AND 1 WEEK OFF
     Route: 048
     Dates: start: 20170307, end: 20170619
  11. ELOTUZUMAB. [Suspect]
     Active Substance: ELOTUZUMAB
     Indication: PLASMA CELL MYELOMA
     Dosage: 10 MG/KG, UNK
     Route: 042
     Dates: start: 20170307, end: 20170619
  12. DECADRON [Suspect]
     Active Substance: DEXAMETHASONE
     Indication: PLASMA CELL MYELOMA
     Dosage: 8 MG, C 1 PLUS 2, DAY 1,8, 15, C3 PLUS 4 DAY 1, 11
     Route: 048
     Dates: start: 20170307, end: 20170619
  13. CYTOXAN [Suspect]
     Active Substance: CYCLOPHOSPHAMIDE
     Indication: PLASMA CELL MYELOMA
     Route: 065
  14. MELPHALAN. [Concomitant]
     Active Substance: MELPHALAN
     Indication: PRODUCT USED FOR UNKNOWN INDICATION
     Dosage: 100 MG/M2, UNK
     Route: 042

REACTIONS (8)
  - Decreased appetite [Recovered/Resolved with Sequelae]
  - Septic shock [Recovered/Resolved with Sequelae]
  - Abdominal wall abscess [Recovered/Resolved]
  - Adverse event [Recovered/Resolved with Sequelae]
  - Malabsorption [Recovered/Resolved with Sequelae]
  - Gastrointestinal disorder [Unknown]
  - Vomiting [Recovered/Resolved with Sequelae]
  - Nausea [Recovered/Resolved with Sequelae]

NARRATIVE: CASE EVENT DATE: 20170405
